FAERS Safety Report 21738377 (Version 3)
Quarter: 2023Q1

REPORT INFORMATION
  Report Type: Report from Study
  Country: CO (occurrence: CO)
  Receive Date: 20221216
  Receipt Date: 20230323
  Transmission Date: 20230418
  Serious: Yes (Other)
  Sender: FDA-Public Use
  Company Number: CO-002147023-NVSC2022CO289083

PATIENT
  Sex: Female

DRUGS (2)
  1. BROLUCIZUMAB [Suspect]
     Active Substance: BROLUCIZUMAB
     Indication: Macular degeneration
     Dosage: UNK, QMO
     Route: 047
  2. BROLUCIZUMAB [Suspect]
     Active Substance: BROLUCIZUMAB
     Dosage: EVERY 2 AND A HALF MONTH (IN THE EYE)
     Route: 047

REACTIONS (3)
  - Malaise [Unknown]
  - Eye discharge [Unknown]
  - Ocular discomfort [Unknown]
